FAERS Safety Report 14920686 (Version 1)
Quarter: 2018Q2

REPORT INFORMATION
  Report Type: Spontaneous
  Country: None (occurrence: NO)
  Receive Date: 20180521
  Receipt Date: 20180521
  Transmission Date: 20180711
  Serious: Yes (Hospitalization, Other)
  Sender: FDA-Public Use
  Company Number: NO-MEDAC PHARMA, INC.-2048177

PATIENT
  Sex: Female

DRUGS (6)
  1. FOLIC ACID. [Concomitant]
     Active Substance: FOLIC ACID
  2. METEX (METHOTREXATE) [Suspect]
     Active Substance: METHOTREXATE
     Indication: PRODUCT USED FOR UNKNOWN INDICATION
     Route: 058
     Dates: start: 201502, end: 20150818
  3. SYMBICORT [Concomitant]
     Active Substance: BUDESONIDE\FORMOTEROL FUMARATE DIHYDRATE
  4. ATACAND [Concomitant]
     Active Substance: CANDESARTAN CILEXETIL
  5. METHOTREXATE. [Suspect]
     Active Substance: METHOTREXATE
     Dates: start: 20100824, end: 20150210
  6. HUMIRA [Suspect]
     Active Substance: ADALIMUMAB
     Route: 058
     Dates: start: 20110927, end: 20150406

REACTIONS (18)
  - Malaise [Unknown]
  - Joint lock [Unknown]
  - Hypometabolism [Unknown]
  - Fatigue [Unknown]
  - Arthritis [Not Recovered/Not Resolved]
  - Aphasia [Unknown]
  - Headache [Not Recovered/Not Resolved]
  - Disturbance in attention [Unknown]
  - Hyperacusis [Unknown]
  - Fungal oesophagitis [Unknown]
  - Influenza [Recovered/Resolved]
  - Meningitis viral [Unknown]
  - Memory impairment [Unknown]
  - Cognitive disorder [Not Recovered/Not Resolved]
  - Pain [Unknown]
  - Joint effusion [Unknown]
  - Crying [Unknown]
  - Back pain [Unknown]

NARRATIVE: CASE EVENT DATE: 2015
